FAERS Safety Report 16535973 (Version 1)
Quarter: 2019Q3

REPORT INFORMATION
  Report Type: Spontaneous
  Country: US (occurrence: US)
  Receive Date: 20190705
  Receipt Date: 20190705
  Transmission Date: 20191004
  Serious: No
  Sender: FDA-Public Use
  Company Number: US-009507513-1906USA010855

PATIENT
  Age: 68 Year
  Sex: Female

DRUGS (3)
  1. PRANDIN (DEFLAZACORT) [Suspect]
     Active Substance: DEFLAZACORT
     Dosage: UNK
     Dates: start: 2019
  2. JANUVIA [Suspect]
     Active Substance: SITAGLIPTIN PHOSPHATE
     Indication: DIABETES MELLITUS
     Dosage: UNK, QD
     Route: 048
     Dates: end: 2019
  3. METFORMIN [Suspect]
     Active Substance: METFORMIN HYDROCHLORIDE
     Dosage: UNK
     Dates: start: 2019

REACTIONS (2)
  - Blood glucose increased [Unknown]
  - Product dose omission [Unknown]
